FAERS Safety Report 17981070 (Version 4)
Quarter: 2021Q1

REPORT INFORMATION
  Report Type: Spontaneous
  Country: ES (occurrence: ES)
  Receive Date: 20200704
  Receipt Date: 20210322
  Transmission Date: 20210419
  Serious: Yes (Life-Threatening, Hospitalization, Other)
  Sender: FDA-Public Use
  Company Number: NVSC2020ES187743

PATIENT
  Age: 22 Year
  Sex: Female

DRUGS (14)
  1. RITUXIMAB. [Suspect]
     Active Substance: RITUXIMAB
     Indication: DERMATOMYOSITIS
     Dosage: 1000 MG DAY 0 AND DAY 15 EVERY FIVE MONTHS AND COMPLETED TEN CYCLES
     Route: 040
     Dates: start: 2016, end: 2019
  2. AZATHIOPRINE. [Suspect]
     Active Substance: AZATHIOPRINE
     Dosage: 150 MG, QD (RE?INITIATED AT A DOSE OF 150 MG PER DAY)
     Route: 065
     Dates: start: 201905
  3. AZATHIOPRINE. [Suspect]
     Active Substance: AZATHIOPRINE
     Dosage: 75 MG, QD
     Route: 065
     Dates: start: 2019
  4. HYDROXYCHLOROQUINE [Concomitant]
     Active Substance: HYDROXYCHLOROQUINE
     Indication: RASH
     Dosage: 200 MG, 1 DOSE 24 HOURS
     Route: 065
     Dates: start: 2015
  5. HYDROXYCHLOROQUINE [Concomitant]
     Active Substance: HYDROXYCHLOROQUINE
     Indication: SYSTEMIC LUPUS ERYTHEMATOSUS
  6. AZATHIOPRINE. [Suspect]
     Active Substance: AZATHIOPRINE
     Dosage: UNK, QD
     Route: 065
  7. AZATHIOPRINE. [Suspect]
     Active Substance: AZATHIOPRINE
     Dosage: 100 MG, QD
     Route: 065
     Dates: start: 2019
  8. AZATHIOPRINE. [Suspect]
     Active Substance: AZATHIOPRINE
     Dosage: 100 MG, QD
     Route: 065
     Dates: start: 2016
  9. RITUXIMAB. [Suspect]
     Active Substance: RITUXIMAB
     Dosage: 375 MG/M2, QW (375 MG/M2, WEEKLY FOR 4 WEEKS)
     Route: 065
  10. RITUXIMAB. [Suspect]
     Active Substance: RITUXIMAB
     Dosage: 500 MG, 1X, SINGLE DOSE
     Route: 040
     Dates: start: 201905
  11. AZATHIOPRINE. [Suspect]
     Active Substance: AZATHIOPRINE
     Indication: DERMATOMYOSITIS
     Dosage: 150 MG, QD
     Route: 065
     Dates: start: 2016
  12. AZATHIOPRINE. [Suspect]
     Active Substance: AZATHIOPRINE
     Dosage: 75 MG, QD
     Route: 065
     Dates: start: 2016
  13. PREDNISONE. [Suspect]
     Active Substance: PREDNISONE
     Indication: SYSTEMIC LUPUS ERYTHEMATOSUS
     Dosage: 60 MG, QD
     Route: 065
     Dates: start: 2015
  14. PREDNISONE. [Suspect]
     Active Substance: PREDNISONE
     Dosage: 5 MG
     Route: 065

REACTIONS (19)
  - Disorientation [Unknown]
  - Aggression [Unknown]
  - Off label use [Unknown]
  - Cerebral toxoplasmosis [Recovered/Resolved]
  - Dysphagia [Recovering/Resolving]
  - Psychotic disorder [Unknown]
  - Headache [Recovering/Resolving]
  - Reactive psychosis [Unknown]
  - Intentional product use issue [Unknown]
  - Product use in unapproved indication [Unknown]
  - Facial paralysis [Recovering/Resolving]
  - Hiccups [Recovering/Resolving]
  - Discomfort [Unknown]
  - Dysarthria [Unknown]
  - Cranial nerve injury [Recovering/Resolving]
  - Haematotoxicity [Unknown]
  - Incorrect drug administration rate [Unknown]
  - Vomiting [Recovering/Resolving]
  - Nervousness [Unknown]

NARRATIVE: CASE EVENT DATE: 2016
